FAERS Safety Report 7072226-2 (Version None)
Quarter: 2010Q4

REPORT INFORMATION
  Report Type: 
  Country: None (occurrence: None)
  Receive Date: 20101029
  Receipt Date: 20091222
  Transmission Date: 20110411
  Serious: No
  Sender: FDA-Public Use
  Company Number: A0836436A

PATIENT
  Sex: Female

DRUGS (8)
  1. ADVAIR DISKUS 100/50 [Suspect]
     Indication: ASTHMA
     Dosage: 1PUFF PER DAY
     Route: 055
     Dates: start: 20010401
  2. NASONEX [Concomitant]
  3. COMBIVENT [Concomitant]
  4. ALENDRONATE SODIUM [Concomitant]
  5. OSCAL [Concomitant]
  6. ASPIRIN [Concomitant]
  7. CENTRUM SILVER [Concomitant]
  8. ALLEGRA D 24 HOUR [Concomitant]

REACTIONS (4)
  - DRY MOUTH [None]
  - EYE DISORDER [None]
  - ORAL DISCOMFORT [None]
  - TONGUE DISCOLOURATION [None]
